FAERS Safety Report 16001550 (Version 1)
Quarter: 2019Q1

REPORT INFORMATION
  Report Type: Spontaneous
  Country: JP (occurrence: JP)
  Receive Date: 20190225
  Receipt Date: 20190225
  Transmission Date: 20190418
  Serious: Yes (Other)
  Sender: FDA-Public Use
  Company Number: JP-PFIZER INC-2019073973

PATIENT

DRUGS (2)
  1. LORBRENA [Suspect]
     Active Substance: LORLATINIB
     Dosage: UNK, ON 2 WEEKS AND OFF ON 2 WEEKS
  2. ALECENSA [Concomitant]
     Active Substance: ALECTINIB HYDROCHLORIDE
     Dosage: UNK,ON 2 WEEKS AND OFF ON 2 WEEKS

REACTIONS (1)
  - Arrhythmia [Unknown]
